FAERS Safety Report 14685063 (Version 2)
Quarter: 2021Q1

REPORT INFORMATION
  Report Type: Report from Study
  Country: JP (occurrence: JP)
  Receive Date: 20180327
  Receipt Date: 20210304
  Transmission Date: 20210419
  Serious: Yes (Death, Other)
  Sender: FDA-Public Use
  Company Number: JP-BIOGEN-2018BI00513786

PATIENT
  Age: 77 Year
  Sex: Male
  Weight: 34.2 kg

DRUGS (13)
  1. MECOBALAMIN [Concomitant]
     Active Substance: METHYLCOBALAMIN
     Indication: NEUROPATHY PERIPHERAL
     Route: 050
     Dates: start: 20130720, end: 20171224
  2. MAGMITT [Concomitant]
     Active Substance: MAGNESIUM OXIDE
     Indication: CONSTIPATION
     Route: 050
     Dates: start: 20170713, end: 20171224
  3. TECFIDERA [Suspect]
     Active Substance: DIMETHYL FUMARATE
     Route: 050
     Dates: start: 20170905, end: 20171222
  4. ATARAX?P [Concomitant]
     Active Substance: HYDROXYZINE HYDROCHLORIDE
     Indication: NEUROSIS
     Route: 050
     Dates: start: 20171114, end: 20171223
  5. ADETPHOS [Concomitant]
     Active Substance: ADENOSINE TRIPHOSPHATE
     Indication: VERTIGO
     Route: 050
     Dates: start: 20170720, end: 20171224
  6. BAKTAR [Concomitant]
     Active Substance: SULFAMETHOXAZOLE\TRIMETHOPRIM
     Indication: ANTIFUNGAL PROPHYLAXIS
     Dosage: ADMINISTERED TWO DAYS PER WEEK
     Route: 050
     Dates: end: 20171222
  7. LANSOPRAZOLE. [Concomitant]
     Active Substance: LANSOPRAZOLE
     Indication: GASTROOESOPHAGEAL REFLUX DISEASE
     Route: 050
     Dates: start: 20130801, end: 20171224
  8. TECFIDERA [Suspect]
     Active Substance: DIMETHYL FUMARATE
     Indication: SECONDARY PROGRESSIVE MULTIPLE SCLEROSIS
     Route: 050
     Dates: start: 20170830, end: 20170904
  9. ROZEREM [Concomitant]
     Active Substance: RAMELTEON
     Indication: INSOMNIA
     Route: 050
     Dates: start: 20171114, end: 20171223
  10. HOKUNALIN:TAPE [Concomitant]
     Active Substance: TULOBUTEROL
     Indication: BRONCHITIS CHRONIC
     Route: 050
     Dates: start: 20170713, end: 20171223
  11. SENNOSIDE [Concomitant]
     Active Substance: SENNOSIDES
     Indication: CONSTIPATION
     Route: 050
     Dates: start: 20130921, end: 20171223
  12. LYRICA [Concomitant]
     Active Substance: PREGABALIN
     Indication: NEURALGIA
     Route: 050
     Dates: start: 20150809, end: 20171224
  13. PREDONINE [Concomitant]
     Active Substance: PREDNISOLONE
     Indication: MULTIPLE SCLEROSIS
     Route: 050
     Dates: start: 20130818, end: 20171224

REACTIONS (15)
  - Flushing [Recovered/Resolved]
  - Coma [Fatal]
  - Decreased appetite [Unknown]
  - Therapeutic product effect incomplete [Unknown]
  - Respiratory failure [Fatal]
  - Nutritional condition abnormal [Fatal]
  - Pyelonephritis acute [Recovered/Resolved]
  - Urinary retention [Unknown]
  - Lymphocyte count decreased [Recovered/Resolved]
  - Dysuria [Unknown]
  - Device occlusion [Unknown]
  - Multiple sclerosis [Fatal]
  - Pneumonia [Unknown]
  - Depressed level of consciousness [Fatal]
  - Bradycardia [Unknown]

NARRATIVE: CASE EVENT DATE: 20170901
